FAERS Safety Report 11316602 (Version 1)
Quarter: 2015Q3

REPORT INFORMATION
  Report Type: Spontaneous
  Country: FR (occurrence: FR)
  Receive Date: 20150728
  Receipt Date: 20150728
  Transmission Date: 20151125
  Serious: Yes (Life-Threatening, Other)
  Sender: FDA-Public Use
  Company Number: FR-PFIZER INC-FR-WYE-G00805007

PATIENT
  Age: 36 Year
  Sex: Female

DRUGS (4)
  1. LARGACTIL [Concomitant]
     Active Substance: CHLORPROMAZINE
     Indication: BIPOLAR I DISORDER
     Dosage: 25 MG, 2X/DAY
     Route: 048
     Dates: start: 200703, end: 200705
  2. TERCIAN [Suspect]
     Active Substance: CYAMEMAZINE
     Indication: BIPOLAR I DISORDER
     Dosage: UNK
     Route: 048
     Dates: end: 200703
  3. EFFEXOR [Suspect]
     Active Substance: VENLAFAXINE HYDROCHLORIDE
     Indication: BIPOLAR I DISORDER
     Dosage: UNK
     Route: 048
     Dates: end: 200703
  4. DEPAKOTE [Suspect]
     Active Substance: DIVALPROEX SODIUM
     Indication: BIPOLAR I DISORDER
     Dosage: UNK
     Route: 048
     Dates: end: 200703

REACTIONS (6)
  - Placental infarction [Recovered/Resolved]
  - Necrosis ischaemic [Recovered/Resolved]
  - Placental disorder [Recovered/Resolved]
  - Placental necrosis [Recovered/Resolved]
  - Abortion induced [Recovered/Resolved]
  - Placental chorioangioma [Recovered/Resolved]

NARRATIVE: CASE EVENT DATE: 2007
